FAERS Safety Report 7604767-0 (Version None)
Quarter: 2011Q3

REPORT INFORMATION
  Report Type: 
  Country: None (occurrence: None)
  Receive Date: 20110712
  Receipt Date: 20110701
  Transmission Date: 20111222
  Serious: Yes (Hospitalization, Other)
  Sender: FDA-Public Use
  Company Number: PHEH2009US02154

PATIENT
  Sex: Male
  Weight: 60 kg

DRUGS (36)
  1. ZETIA [Concomitant]
  2. RETROVIR [Concomitant]
  3. DEBROX [Concomitant]
  4. VELCADE [Concomitant]
  5. KALETRA [Concomitant]
  6. ADRIAMYCIN PFS [Concomitant]
     Dosage: UNK
     Dates: start: 20010901
  7. AREDIA [Suspect]
  8. ZOMETA [Suspect]
     Dosage: UNK
     Dates: end: 20040101
  9. VIDEX [Concomitant]
  10. THALIDOMIDE [Concomitant]
  11. VIRACEPT [Concomitant]
  12. DEXAMETHASONE [Concomitant]
     Dosage: UNK
     Dates: end: 20010901
  13. FLUMADINE [Concomitant]
  14. ZERIT [Concomitant]
  15. RAMIPRIL [Concomitant]
  16. TRUVADA [Concomitant]
  17. BACTRIM [Concomitant]
  18. SUSTRATE [Concomitant]
  19. INTELENCE [Concomitant]
  20. SUSTIVA [Concomitant]
  21. MOTRIN [Concomitant]
  22. DECADRON [Concomitant]
  23. EPIVIR [Concomitant]
  24. LIPITOR [Concomitant]
  25. COUMADIN [Concomitant]
  26. DOXYCYCLINE [Concomitant]
  27. VIREAD [Concomitant]
  28. NORVIR [Concomitant]
  29. VINCRISTINE [Concomitant]
     Dosage: UNK
     Dates: end: 20010901
  30. TOPROL-XL [Concomitant]
  31. VIDEX [Concomitant]
  32. TOBRADEX [Concomitant]
  33. PREZISTA [Concomitant]
  34. ISENTRESS [Concomitant]
  35. REVLIMID [Concomitant]
     Dosage: 25 MG/DAY
  36. BIAXIN [Concomitant]

REACTIONS (63)
  - OSTEOPENIA [None]
  - PAIN IN JAW [None]
  - NEUROPATHY PERIPHERAL [None]
  - CERUMEN IMPACTION [None]
  - HYPOACUSIS [None]
  - EAR PAIN [None]
  - HYPERTENSION [None]
  - NAUSEA [None]
  - MUSCLE STRAIN [None]
  - BURSITIS [None]
  - METASTASES TO SPINE [None]
  - BONE LESION [None]
  - DIABETIC KETOACIDOSIS [None]
  - HORDEOLUM [None]
  - PALPITATIONS [None]
  - HYPERGLYCAEMIA [None]
  - PAIN IN EXTREMITY [None]
  - OSTEONECROSIS [None]
  - SPINAL COMPRESSION FRACTURE [None]
  - BONE INFARCTION [None]
  - EUSTACHIAN TUBE DYSFUNCTION [None]
  - RHINITIS ALLERGIC [None]
  - MUSCULOSKELETAL CHEST PAIN [None]
  - ANAEMIA [None]
  - ANXIETY [None]
  - WEIGHT DECREASED [None]
  - FACIAL PAIN [None]
  - LIGHT CHAIN ANALYSIS INCREASED [None]
  - INTERVERTEBRAL DISC DEGENERATION [None]
  - BACK PAIN [None]
  - BLOOD TRIGLYCERIDES INCREASED [None]
  - CYST [None]
  - SINUSITIS [None]
  - DYSURIA [None]
  - DIARRHOEA [None]
  - LEFT VENTRICULAR HYPERTROPHY [None]
  - NEPHROLITHIASIS [None]
  - MUSCLE INJURY [None]
  - MUSCLE SPASMS [None]
  - CONJUNCTIVITIS [None]
  - HEADACHE [None]
  - GLYCOSURIA [None]
  - COUGH [None]
  - EAR DISCOMFORT [None]
  - ABDOMINAL PAIN [None]
  - CONSTIPATION [None]
  - EJECTION FRACTION DECREASED [None]
  - GINGIVAL PAIN [None]
  - SINUS TACHYCARDIA [None]
  - VENTRICULAR EXTRASYSTOLES [None]
  - TRIGGER FINGER [None]
  - PATELLOFEMORAL PAIN SYNDROME [None]
  - SPINAL DISORDER [None]
  - PELVIC PAIN [None]
  - GRANULOCYTOPENIA [None]
  - ALANINE AMINOTRANSFERASE INCREASED [None]
  - LEFT VENTRICULAR DYSFUNCTION [None]
  - OSTEONECROSIS OF JAW [None]
  - HYPOAESTHESIA [None]
  - MUSCULOSKELETAL PAIN [None]
  - CONCOMITANT DISEASE PROGRESSION [None]
  - ABDOMINAL DISCOMFORT [None]
  - VOMITING [None]
